FAERS Safety Report 11544473 (Version 1)
Quarter: 2015Q3

REPORT INFORMATION
  Report Type: Spontaneous
  Country: GB (occurrence: GB)
  Receive Date: 20150924
  Receipt Date: 20150924
  Transmission Date: 20151125
  Serious: Yes (Other)
  Sender: FDA-Public Use
  Company Number: GB-SUN PHARMACEUTICAL INDUSTRIES LTD-13SUNOC02P

PATIENT
  Sex: Female
  Weight: 4.56 kg

DRUGS (3)
  1. OCTREOTIDE. [Suspect]
     Active Substance: OCTREOTIDE
     Dosage: UNK
     Route: 065
  2. OCTREOTIDE. [Suspect]
     Active Substance: OCTREOTIDE
     Indication: HYPERINSULINISM
     Dosage: 20 ?G/KG, DAILY
     Route: 058
  3. OCTREOTIDE. [Suspect]
     Active Substance: OCTREOTIDE
     Dosage: 30 ?G/KG, DAILY
     Route: 058

REACTIONS (3)
  - Drug-induced liver injury [Recovered/Resolved]
  - Drug-disease interaction [Recovered/Resolved]
  - Drug ineffective [Unknown]
